FAERS Safety Report 19979308 (Version 1)
Quarter: 2021Q4

REPORT INFORMATION
  Report Type: Spontaneous
  Country: US (occurrence: US)
  Receive Date: 20211021
  Receipt Date: 20211021
  Transmission Date: 20220304
  Serious: Yes (Hospitalization)
  Sender: FDA-Public Use
  Company Number: None

PATIENT
  Age: 30 Year
  Sex: Female
  Weight: 126 kg

DRUGS (3)
  1. REGEN-COV [Suspect]
     Active Substance: CASIRIVIMAB\IMDEVIMAB
     Indication: COVID-19
     Dosage: ?          OTHER FREQUENCY:ONCE;
     Route: 058
     Dates: start: 20211021, end: 20211021
  2. ASPIRIN TAB,EC  81MG [Concomitant]
     Dates: start: 20211020
  3. medroxyPROGESTERone 150MG/ML INJ, [Concomitant]

REACTIONS (3)
  - Hypotension [None]
  - Tachycardia [None]
  - Pulmonary pain [None]

NARRATIVE: CASE EVENT DATE: 20211021
